FAERS Safety Report 14718089 (Version 1)
Quarter: 2018Q2

REPORT INFORMATION
  Report Type: Spontaneous
  Country: US (occurrence: US)
  Receive Date: 20180404
  Receipt Date: 20180404
  Transmission Date: 20180711
  Serious: No
  Sender: FDA-Public Use
  Company Number: US-SA-2018SA035183

PATIENT
  Age: 38 Year
  Sex: Male

DRUGS (4)
  1. MELATONIN [Concomitant]
     Active Substance: MELATONIN
     Route: 065
  2. ALLEGRA-D [Concomitant]
     Active Substance: FEXOFENADINE\PSEUDOEPHEDRINE
     Route: 065
  3. DUPIXENT [Suspect]
     Active Substance: DUPILUMAB
     Indication: DERMATITIS ATOPIC
     Route: 058
  4. PREDNISONE. [Concomitant]
     Active Substance: PREDNISONE
     Route: 065

REACTIONS (1)
  - Eye irritation [Not Recovered/Not Resolved]

NARRATIVE: CASE EVENT DATE: 201711
